FAERS Safety Report 17018688 (Version 1)
Quarter: 2019Q4

REPORT INFORMATION
  Report Type: Spontaneous
  Country: US (occurrence: US)
  Receive Date: 20191111
  Receipt Date: 20191111
  Transmission Date: 20200122
  Serious: Yes (Other)
  Sender: FDA-Public Use
  Company Number: US-ROCHE-2462282

PATIENT
  Sex: Female

DRUGS (1)
  1. XOLAIR [Suspect]
     Active Substance: OMALIZUMAB
     Indication: IDIOPATHIC URTICARIA
     Dosage: AS DIRECTED,
     Route: 058
     Dates: start: 20180301

REACTIONS (3)
  - Vision blurred [Unknown]
  - Vitreous detachment [Unknown]
  - Drug ineffective [Unknown]
